FAERS Safety Report 12869900 (Version 1)
Quarter: 2016Q4

REPORT INFORMATION
  Report Type: Spontaneous
  Country: US (occurrence: US)
  Receive Date: 20161020
  Receipt Date: 20161020
  Transmission Date: 20170207
  Serious: No
  Sender: FDA-Public Use
  Company Number: None

PATIENT

DRUGS (1)
  1. VICODIN [Suspect]
     Active Substance: ACETAMINOPHEN\HYDROCODONE BITARTRATE

REACTIONS (14)
  - Dizziness [None]
  - Drug ineffective [None]
  - Documented hypersensitivity to administered product [None]
  - Abdominal distension [None]
  - Dyspnoea [None]
  - Musculoskeletal chest pain [None]
  - Abdominal pain lower [None]
  - Gait disturbance [None]
  - Burning sensation [None]
  - Asthenia [None]
  - Somnolence [None]
  - Chest pain [None]
  - Dysarthria [None]
  - Surgical procedure repeated [None]
